FAERS Safety Report 5777982-9 (Version None)
Quarter: 2008Q2

REPORT INFORMATION
  Report Type: 
  Country: None (occurrence: None)
  Receive Date: 20080617
  Receipt Date: 20080603
  Transmission Date: 20081010
  Serious: Yes (Death, Hospitalization)
  Sender: FDA-Public Use
  Company Number: 2008US000554

PATIENT
  Age: 49 Year
  Sex: Female

DRUGS (1)
  1. PROGRAF [Suspect]
     Indication: BONE MARROW TRANSPLANT
     Dosage: 1 MG, BID
     Dates: start: 20070315

REACTIONS (10)
  - BRONCHOPULMONARY ASPERGILLOSIS [None]
  - DIARRHOEA [None]
  - DISEASE PROGRESSION [None]
  - GRAFT VERSUS HOST DISEASE [None]
  - HYPOTENSION [None]
  - MALIGNANT PLEURAL EFFUSION [None]
  - MULTIPLE MYELOMA [None]
  - MUSCULOSKELETAL DISORDER [None]
  - PLASMACYTOMA [None]
  - TERMINAL STATE [None]
